FAERS Safety Report 10368244 (Version 7)
Quarter: 2015Q1

REPORT INFORMATION
  Report Type: Report from Study
  Country: PL (occurrence: PL)
  Receive Date: 20140807
  Receipt Date: 20150306
  Transmission Date: 20150720
  Serious: Yes (Life-Threatening, Hospitalization)
  Sender: FDA-Public Use
  Company Number: PL-ROCHE-1445011

PATIENT
  Sex: Female
  Weight: 67 kg

DRUGS (58)
  1. PARACETAMOLUM [Concomitant]
     Route: 048
     Dates: start: 20150107, end: 20150107
  2. CLEMASTINUM [Concomitant]
     Route: 042
     Dates: start: 20140901, end: 20140901
  3. ACICLOVIR [Concomitant]
     Active Substance: ACYCLOVIR
     Route: 048
     Dates: start: 20140801, end: 20140812
  4. FLUCONAZOLUM [Concomitant]
     Route: 042
     Dates: start: 20140801, end: 20140807
  5. OBINUTUZUMAB [Suspect]
     Active Substance: OBINUTUZUMAB
     Indication: CHRONIC LYMPHOCYTIC LEUKAEMIA
     Dosage: C1D1?LAST DOSE RECEIVED PRIOR TO SAE: 29/JUL/2014
     Route: 042
     Dates: start: 20140729, end: 20140730
  6. CLEMASTINUM [Concomitant]
     Dosage: SINGLE DOSE
     Route: 042
     Dates: start: 20150107, end: 20150107
  7. CLEMASTINUM [Concomitant]
     Route: 042
     Dates: start: 20141208, end: 20141208
  8. AMIKIN [Concomitant]
     Active Substance: AMIKACIN SULFATE
     Route: 042
     Dates: start: 20140801, end: 20140811
  9. OBINUTUZUMAB [Suspect]
     Active Substance: OBINUTUZUMAB
     Dosage: C1D2?DOSE OF C1D2 WAS DELAYED AND ADMINISTERED ON 19/AUG/2014 INSTEAD OF 30/JUL/2014.?AS PER PROTOCO
     Route: 042
     Dates: start: 20140819, end: 20140819
  10. DEXAMETHASON [Concomitant]
     Active Substance: DEXAMETHASONE
     Route: 042
     Dates: start: 20140819, end: 20140819
  11. PARACETAMOLUM [Concomitant]
     Route: 048
     Dates: start: 20140825, end: 20140825
  12. ENCORTON [Concomitant]
     Active Substance: PREDNISONE
     Route: 048
     Dates: start: 20141014, end: 20141017
  13. CHLORAMBUCIL [Suspect]
     Active Substance: CHLORAMBUCIL
     Indication: CHRONIC LYMPHOCYTIC LEUKAEMIA
     Dosage: AS PER PROTOCOL, DOSE ADMINISTERED ON DAY 1 AND 15 OF EACH CYCLE.?LAST DOSE PRIOR TO SAE:  29/JUL/20
     Route: 048
     Dates: start: 20140729
  14. DEXAMETHASON [Concomitant]
     Active Substance: DEXAMETHASONE
     Indication: PROPHYLAXIS
     Dosage: CYCLE 1 DAY1 :  100 MG AT INFUSION RATE OF 25 ON 29/JUL/2014?CYCLE 1 DAY2 :  900 MG AT INFUSION RATE
     Route: 042
     Dates: start: 20140728, end: 20140729
  15. DEXAMETHASON [Concomitant]
     Active Substance: DEXAMETHASONE
     Route: 042
     Dates: start: 20140915, end: 20140915
  16. DEXAMETHASON [Concomitant]
     Active Substance: DEXAMETHASONE
     Route: 042
     Dates: start: 20141208, end: 20141208
  17. PARACETAMOLUM [Concomitant]
     Route: 048
     Dates: start: 20141013, end: 20141013
  18. ALLOPURINOL. [Concomitant]
     Active Substance: ALLOPURINOL
     Indication: PROPHYLAXIS
     Route: 048
     Dates: start: 20140729, end: 20140803
  19. ALLOPURINOL. [Concomitant]
     Active Substance: ALLOPURINOL
     Route: 048
     Dates: start: 20140901, end: 20140901
  20. ENCORTON [Concomitant]
     Active Substance: PREDNISONE
     Route: 048
     Dates: start: 20141209, end: 20141212
  21. ZOCOR [Concomitant]
     Active Substance: SIMVASTATIN
     Route: 048
     Dates: start: 20140627
  22. DEXAMETHASON [Concomitant]
     Active Substance: DEXAMETHASONE
     Route: 042
     Dates: start: 20141013, end: 20141013
  23. BIOFUROKSYM [Concomitant]
     Active Substance: CEFUROXIME SODIUM
     Route: 042
     Dates: start: 20140730, end: 20140801
  24. LORISTA H [Concomitant]
     Route: 048
     Dates: start: 2000, end: 20140806
  25. MOLSIDOMINA [Concomitant]
     Route: 065
     Dates: start: 2014
  26. ACARD [Concomitant]
     Active Substance: ASPIRIN
     Route: 048
     Dates: start: 20140627, end: 20140803
  27. AMLODIPINE [Concomitant]
     Active Substance: AMLODIPINE BESYLATE
     Route: 048
     Dates: start: 20140806
  28. PARACETAMOLUM [Concomitant]
     Route: 048
     Dates: start: 20141208, end: 20141208
  29. PARACETAMOLUM [Concomitant]
     Route: 048
     Dates: start: 20141112, end: 20141112
  30. CLEMASTINUM [Concomitant]
     Route: 042
     Dates: start: 20140825, end: 20140825
  31. ALLOPURINOL. [Concomitant]
     Active Substance: ALLOPURINOL
     Route: 048
     Dates: start: 20140704, end: 20140812
  32. ALLOPURINOL. [Concomitant]
     Active Substance: ALLOPURINOL
     Route: 048
     Dates: start: 20140825, end: 20140826
  33. ALLOPURINOL. [Concomitant]
     Active Substance: ALLOPURINOL
     Route: 048
     Dates: start: 20140819, end: 20140820
  34. LAKCID [Concomitant]
     Route: 048
     Dates: start: 20140731
  35. HYDROCHLOROTHIAZIDE. [Concomitant]
     Active Substance: HYDROCHLOROTHIAZIDE
     Route: 048
     Dates: start: 20140806
  36. DEXAMETHASON [Concomitant]
     Active Substance: DEXAMETHASONE
     Route: 042
     Dates: start: 20140901, end: 20140901
  37. DEXAMETHASON [Concomitant]
     Active Substance: DEXAMETHASONE
     Route: 042
     Dates: start: 20150107, end: 20150107
  38. DEXAMETHASON [Concomitant]
     Active Substance: DEXAMETHASONE
     Route: 042
     Dates: start: 20141112, end: 20141112
  39. PARACETAMOLUM [Concomitant]
     Route: 048
     Dates: start: 20140819, end: 20140819
  40. PARACETAMOLUM [Concomitant]
     Route: 048
     Dates: start: 20140915, end: 20140915
  41. CLEMASTINUM [Concomitant]
     Route: 042
     Dates: start: 20141013, end: 20141013
  42. METAMIZOLUM NATRICUM [Concomitant]
     Route: 042
     Dates: start: 20140730, end: 20140730
  43. CAPTOPRIL. [Concomitant]
     Active Substance: CAPTOPRIL
     Route: 060
     Dates: start: 20140804, end: 20140804
  44. FORTUM [Concomitant]
     Active Substance: CEFTAZIDIME
     Route: 042
     Dates: start: 20140801, end: 20140811
  45. CHLORAMBUCIL [Suspect]
     Active Substance: CHLORAMBUCIL
     Dosage: C1D15
     Route: 048
     Dates: start: 20140901
  46. MOLSIDOMINA [Concomitant]
     Route: 048
     Dates: start: 2000
  47. TENSART (POLAND) [Concomitant]
     Route: 048
     Dates: start: 20140806
  48. DEXAMETHASON [Concomitant]
     Active Substance: DEXAMETHASONE
     Route: 042
     Dates: start: 20140825, end: 20140825
  49. PARACETAMOLUM [Concomitant]
     Indication: PROPHYLAXIS
     Route: 048
     Dates: start: 20140729, end: 20140729
  50. PARACETAMOLUM [Concomitant]
     Route: 048
     Dates: start: 20140901, end: 20140901
  51. CLEMASTINUM [Concomitant]
     Route: 042
     Dates: start: 20140729, end: 20140729
  52. CLEMASTINUM [Concomitant]
     Route: 042
     Dates: start: 20140915, end: 20140915
  53. CLEMASTINUM [Concomitant]
     Route: 042
     Dates: start: 20140819, end: 20140819
  54. CLEMASTINUM [Concomitant]
     Route: 042
     Dates: start: 20141112, end: 20141112
  55. CAPTOPRIL. [Concomitant]
     Active Substance: CAPTOPRIL
     Route: 060
     Dates: start: 20140820, end: 20140820
  56. ENCORTON [Concomitant]
     Active Substance: PREDNISONE
     Indication: PROPHYLAXIS
     Route: 048
     Dates: start: 20140902, end: 20140905
  57. ENCORTON [Concomitant]
     Active Substance: PREDNISONE
     Route: 048
     Dates: start: 20141113, end: 20141115
  58. FLUCONAZOLUM [Concomitant]
     Route: 048
     Dates: start: 20140809, end: 20140812

REACTIONS (2)
  - Drug-induced liver injury [Recovered/Resolved]
  - Thrombocytopenia [Recovered/Resolved]

NARRATIVE: CASE EVENT DATE: 20140730
